FAERS Safety Report 12135085 (Version 19)
Quarter: 2018Q3

REPORT INFORMATION
  Report Type: Spontaneous
  Country: US (occurrence: US)
  Receive Date: 20160301
  Receipt Date: 20180822
  Transmission Date: 20181010
  Serious: Yes (Hospitalization, Other)
  Sender: FDA-Public Use
  Company Number: US-ACTELION-A-NJ2016-131949

PATIENT
  Age: 21 Year
  Sex: Female

DRUGS (19)
  1. REMODULIN [Suspect]
     Active Substance: TREPROSTINIL
     Dosage: UNK
     Route: 058
  2. HYDROCODONE [Concomitant]
     Active Substance: HYDROCODONE
  3. CEFPODOXIME [Concomitant]
     Active Substance: CEFPODOXIME
  4. VITAMIN C [Concomitant]
     Active Substance: ASCORBIC ACID
     Dosage: UNK
  5. NORETHINDRONE. [Concomitant]
     Active Substance: NORETHINDRONE
     Dosage: UNK
  6. CYCLOBENZAPRINE. [Concomitant]
     Active Substance: CYCLOBENZAPRINE
  7. REMODULIN [Suspect]
     Active Substance: TREPROSTINIL
     Indication: PRODUCT USED FOR UNKNOWN INDICATION
     Dosage: 61 NG/KG, PER MIN
     Route: 042
     Dates: start: 201408
  8. ZANTAC [Concomitant]
     Active Substance: RANITIDINE HYDROCHLORIDE
     Dosage: UNK
  9. OXYGEN. [Concomitant]
     Active Substance: OXYGEN
  10. LORATADINE. [Concomitant]
     Active Substance: LORATADINE
  11. FUROSEMIDE. [Concomitant]
     Active Substance: FUROSEMIDE
  12. NEURONTIN [Concomitant]
     Active Substance: GABAPENTIN
     Dosage: UNK
  13. OPSUMIT [Suspect]
     Active Substance: MACITENTAN
     Indication: PULMONARY ARTERIAL HYPERTENSION
     Dosage: 10 MG, QD
     Route: 048
     Dates: start: 20140602
  14. ADCIRCA [Concomitant]
     Active Substance: TADALAFIL
     Dosage: 20 MG, UNK
     Dates: start: 2014
  15. CLONIDINE. [Concomitant]
     Active Substance: CLONIDINE
  16. IRON [Concomitant]
     Active Substance: IRON
     Dosage: UNK
  17. PEPCID [Concomitant]
     Active Substance: FAMOTIDINE
  18. PROVERA [Concomitant]
     Active Substance: MEDROXYPROGESTERONE ACETATE
  19. NORCO [Concomitant]
     Active Substance: ACETAMINOPHEN\HYDROCODONE BITARTRATE

REACTIONS (35)
  - Catheter site discharge [Unknown]
  - Diarrhoea [Not Recovered/Not Resolved]
  - Chest pain [Unknown]
  - Influenza [Recovered/Resolved]
  - Nocturnal dyspnoea [Unknown]
  - Oxygen saturation decreased [Recovering/Resolving]
  - Menorrhagia [Not Recovered/Not Resolved]
  - Hypotension [Unknown]
  - Fatigue [Unknown]
  - Device related infection [Not Recovered/Not Resolved]
  - Catheter site infection [Recovering/Resolving]
  - Mood swings [Unknown]
  - Mental disorder [Not Recovered/Not Resolved]
  - Vaginal haemorrhage [Unknown]
  - Bacteraemia [Unknown]
  - Lethargy [Not Recovered/Not Resolved]
  - Muscle tightness [Recovering/Resolving]
  - Dermatitis contact [Unknown]
  - Hypopnoea [Unknown]
  - Middle insomnia [Unknown]
  - Pulmonary pain [Unknown]
  - Catheter site pain [Unknown]
  - Dyspnoea [Unknown]
  - Depression [Not Recovered/Not Resolved]
  - Pain [Unknown]
  - Photophobia [Unknown]
  - Device failure [Unknown]
  - Nausea [Unknown]
  - Clostridium difficile infection [Unknown]
  - Refusal of treatment by patient [Unknown]
  - Peripheral swelling [Unknown]
  - Drug dose omission [Unknown]
  - Seizure [Unknown]
  - Dizziness [Recovering/Resolving]
  - Headache [Unknown]

NARRATIVE: CASE EVENT DATE: 201602
